FAERS Safety Report 23658649 (Version 3)
Quarter: 2024Q2

REPORT INFORMATION
  Report Type: Spontaneous
  Country: GB (occurrence: GB)
  Receive Date: 20240321
  Receipt Date: 20240425
  Transmission Date: 20240716
  Serious: Yes (Hospitalization, Other)
  Sender: FDA-Public Use
  Company Number: None

PATIENT
  Age: 68 Year
  Sex: Female
  Weight: 92 kg

DRUGS (130)
  1. IRBESARTAN [Suspect]
     Active Substance: IRBESARTAN
     Indication: Abdominal discomfort
     Dosage: 150 MG, ONCE PER DAY 150 MG, QD (150 MG, QD (DAILY))
     Route: 065
     Dates: start: 20100917
  2. IRBESARTAN [Suspect]
     Active Substance: IRBESARTAN
     Indication: Product used for unknown indication
     Dosage: 150 G, ONCE PER DAY
     Route: 065
     Dates: start: 20100917
  3. IRBESARTAN [Suspect]
     Active Substance: IRBESARTAN
     Indication: Depression
     Dosage: 150 MG, ONCE PER DAY
     Route: 065
     Dates: start: 20100912
  4. IRBESARTAN [Suspect]
     Active Substance: IRBESARTAN
     Dosage: 150 G, ONCE PER DAY
     Route: 065
     Dates: start: 20100917
  5. IRBESARTAN [Suspect]
     Active Substance: IRBESARTAN
     Dosage: 150 G, ONCE PER DAY
     Route: 065
     Dates: start: 20100917
  6. IRBESARTAN [Suspect]
     Active Substance: IRBESARTAN
     Dosage: 150 G, ONCE PER DAY
     Route: 065
     Dates: start: 20100912
  7. IRBESARTAN [Suspect]
     Active Substance: IRBESARTAN
     Dosage: 150 G, ONCE PER DAY
     Route: 065
  8. BIFIDOBACTERIUM LONGUM [Suspect]
     Active Substance: BIFIDOBACTERIUM LONGUM
     Indication: Abdominal discomfort
     Dosage: 750 MG, UNK
     Route: 065
  9. BIFIDOBACTERIUM LONGUM [Suspect]
     Active Substance: BIFIDOBACTERIUM LONGUM
     Indication: Depression
     Dosage: UNK,UNK
  10. CARBOCYSTEINE [Suspect]
     Active Substance: CARBOCYSTEINE
     Indication: Rheumatoid arthritis
     Dosage: 750 MG, ONCE PER DAY
     Route: 065
     Dates: start: 20100917
  11. CARBOCYSTEINE [Suspect]
     Active Substance: CARBOCYSTEINE
     Indication: Product used for unknown indication
     Dosage: 750 MG, ONCE PER DAY (750 MG, QD)
     Route: 065
     Dates: start: 20200917
  12. CARBOCYSTEINE [Suspect]
     Active Substance: CARBOCYSTEINE
     Dosage: 750 MG, ONCE PER DAY
     Route: 065
  13. CARBOCYSTEINE [Suspect]
     Active Substance: CARBOCYSTEINE
     Dosage: UNK,  UNK
  14. CARBOCYSTEINE [Suspect]
     Active Substance: CARBOCYSTEINE
     Dosage: 750 MG, ONCE PER DAY (750 MG, QD)
     Route: 065
     Dates: start: 20210917
  15. CARBOCYSTEINE [Suspect]
     Active Substance: CARBOCYSTEINE
     Dosage: 750 MG, ONCE PER DAY (750 MG, QD)
     Route: 065
     Dates: start: 20120917
  16. CARBOCYSTEINE [Suspect]
     Active Substance: CARBOCYSTEINE
     Dosage: 750 MG, ONCE PER DAY
     Route: 065
  17. CIPROFLOXACIN [Suspect]
     Active Substance: CIPROFLOXACIN
     Indication: Product used for unknown indication
     Dosage: 1000 MG, ONCE PER DAY (1000 MILLIGRAM, QD, BATCH AND LOT TESTED AND FOUND WITHIN SPECIFICATIONS)
     Route: 065
     Dates: start: 20100917
  18. CIPROFLOXACIN [Suspect]
     Active Substance: CIPROFLOXACIN
     Indication: Abdominal discomfort
     Dosage: 1000 MG, ONCE PER DAY (1000 MILLIGRAM, QD, BATCH AND LOT TESTED AND FOUND WITHIN SPECIFICATIONS)
     Route: 065
     Dates: start: 20100917
  19. CIPROFLOXACIN [Suspect]
     Active Substance: CIPROFLOXACIN
     Indication: Depression
     Dosage: UNK,  UNK
  20. CIPROFLOXACIN [Suspect]
     Active Substance: CIPROFLOXACIN
     Indication: Rheumatoid arthritis
     Dosage: UNK,  UNK
  21. CIPROFLOXACIN [Suspect]
     Active Substance: CIPROFLOXACIN
     Dosage: 1000 MG, ONCE PER DAY (1000 MILLIGRAM, QD, BATCH AND LOT TESTED AND FOUND WITHIN SPECIFICATIONS)
     Route: 065
     Dates: start: 20200917
  22. CIPROFLOXACIN [Suspect]
     Active Substance: CIPROFLOXACIN
     Dosage: UNK,  UNK
  23. CIPROFLOXACIN [Suspect]
     Active Substance: CIPROFLOXACIN
     Dosage: UNK
  24. ENBREL [Suspect]
     Active Substance: BENZYL ALCOHOL\ETANERCEPT
     Indication: Rheumatoid arthritis
     Dosage: 50 MG, PER WEEK (50 MG, QW, MYCLIC PEN)
     Route: 058
     Dates: start: 20100917
  25. ENBREL [Suspect]
     Active Substance: BENZYL ALCOHOL\ETANERCEPT
     Dosage: 50 MG, PER WEEK,QW, MYCLIC PEN
     Route: 065
     Dates: start: 20210917
  26. ENBREL [Suspect]
     Active Substance: BENZYL ALCOHOL\ETANERCEPT
     Dosage: UNK, UNK (MYCLIC PEN)
     Route: 065
  27. METHOTREXATE SODIUM [Suspect]
     Active Substance: METHOTREXATE SODIUM
     Indication: Rheumatoid arthritis
     Dosage: 18 MG, PER WEEK (UNKNOWN, WEEKLY, QW (AT 17.5, WEEKLY))
     Dates: start: 20100917
  28. METHOTREXATE SODIUM [Suspect]
     Active Substance: METHOTREXATE SODIUM
     Dosage: 17.5 MG, PER WEEK (17.5 MILLIGRAM, Q.W., UNK UNK, Q.W., WEEKLY, AT 17.5 (UNKNOWN UNIT),)
     Route: 065
     Dates: start: 20100917
  29. METHOTREXATE SODIUM [Suspect]
     Active Substance: METHOTREXATE SODIUM
     Dosage: UNK,  UNK ( WEEKLY (AT 17.5, WEEKLY)
     Dates: start: 20100917
  30. METHOTREXATE SODIUM [Suspect]
     Active Substance: METHOTREXATE SODIUM
     Dosage: 17.5 MG,  UNK
     Dates: start: 20100917
  31. OMEPRAZOLE [Suspect]
     Active Substance: OMEPRAZOLE
     Indication: Abdominal discomfort
     Dosage: 80 MG, ONCE PER DAY (20 MG, 4 TIMES PER DAY)
     Route: 065
     Dates: start: 20100917
  32. OMEPRAZOLE [Suspect]
     Active Substance: OMEPRAZOLE
     Indication: Product used for unknown indication
     Dosage: 20 MG, 2 TIMES PER DAY (20 MG, BID  40 MG, QD 2X/DAY )
     Route: 065
     Dates: start: 20100917
  33. OMEPRAZOLE [Suspect]
     Active Substance: OMEPRAZOLE
     Dosage: 40 MG, ONCE PER DAY (20 MG, 2X/DAY FOR STOMACH;)
     Route: 065
     Dates: start: 20100917
  34. OMEPRAZOLE [Suspect]
     Active Substance: OMEPRAZOLE
     Dosage: 20 MG, 4 TIMES PER DAY
     Route: 065
     Dates: start: 20100917
  35. OMEPRAZOLE [Suspect]
     Active Substance: OMEPRAZOLE
     Dosage: 20 MG,  UNK (BID 40 MG, QD 2X/DAY)
  36. OMEPRAZOLE [Suspect]
     Active Substance: OMEPRAZOLE
     Dosage: 40 MG, 2 TIMES PER DAY (40 MG, QD (20 MG, 2X/DAY))
     Route: 065
     Dates: start: 20100917
  37. OMEPRAZOLE [Suspect]
     Active Substance: OMEPRAZOLE
     Dosage: 20 MG, ONCE PER DAY
     Route: 065
     Dates: start: 20100917
  38. OMEPRAZOLE [Suspect]
     Active Substance: OMEPRAZOLE
     Dosage: 20 MG, 2 TIMES PER DAY (20 MG, 2X/DAY)
     Route: 065
     Dates: start: 20100917
  39. OMEPRAZOLE [Suspect]
     Active Substance: OMEPRAZOLE
     Dosage: 20 MG, ONCE PER DAY
     Route: 065
     Dates: start: 20200917
  40. OMEPRAZOLE [Suspect]
     Active Substance: OMEPRAZOLE
     Dosage: 80 MG, ONCE PER DAY
     Route: 065
     Dates: start: 20200917
  41. OMEPRAZOLE [Suspect]
     Active Substance: OMEPRAZOLE
     Dosage: 20 MG, PER HOUR (480 MILLIGRAM DAILY; 20 MG, 2X/DAY)
     Route: 065
  42. OMEPRAZOLE [Suspect]
     Active Substance: OMEPRAZOLE
     Dosage: 80 MG, ONCE PER DAY
     Route: 065
  43. OMEPRAZOLE [Suspect]
     Active Substance: OMEPRAZOLE
     Dosage: 20 MG, ONCE PER DAY
     Route: 065
  44. PHYLLOCONTIN [Suspect]
     Active Substance: AMINOPHYLLINE
     Indication: Product used for unknown indication
     Dosage: 400 MG, ONCE PER DAY, DAILY
     Route: 065
     Dates: start: 20100917
  45. PHYLLOCONTIN [Suspect]
     Active Substance: AMINOPHYLLINE
     Dosage: 400 MG, ONCE PER DAY (400 MG, QD)
     Route: 065
     Dates: start: 20100917
  46. PHYLLOCONTIN [Suspect]
     Active Substance: AMINOPHYLLINE
     Dosage: 400 MG, ONCE PER DAY (400 MG, QD)
     Route: 065
     Dates: start: 20200917
  47. PHYLLOCONTIN [Suspect]
     Active Substance: AMINOPHYLLINE
     Dosage: 400 MG, ONCE PER DAY (400 MG, QD)
     Route: 065
     Dates: start: 20200917
  48. VENLAFAXINE HYDROCHLORIDE [Suspect]
     Active Substance: VENLAFAXINE HYDROCHLORIDE
     Indication: Depression
     Dosage: 225 MG, ONCE PER DAY (225 MG, DAILY, ONCE A DAY,   PROLONGED RELEASE )
     Route: 065
  49. VENLAFAXINE HYDROCHLORIDE [Suspect]
     Active Substance: VENLAFAXINE HYDROCHLORIDE
     Indication: Rheumatoid arthritis
     Dosage: UNK,  UNK
     Route: 065
  50. VENLAFAXINE HYDROCHLORIDE [Suspect]
     Active Substance: VENLAFAXINE HYDROCHLORIDE
     Dosage: 225 MG,  UNK (225 UNK)
     Route: 065
  51. METHOTREXATE [Suspect]
     Active Substance: METHOTREXATE
     Indication: Rheumatoid arthritis
     Dosage: 18 MG, PER WEEK (18 MG, QW (UNK UNK, WEEKLY (AT 17.5, WEEKLY))
     Dates: start: 20100917
  52. METHOTREXATE [Suspect]
     Active Substance: METHOTREXATE
     Dosage: 17.5 MG, PER WEEK (UNK UNK, WEEKLY (AT 17.5, WEEKLY))
     Route: 065
     Dates: start: 20100917
  53. METHOTREXATE [Suspect]
     Active Substance: METHOTREXATE
     Dosage: UNK, PER WEEK (UNK UNK, QW)
  54. METHOTREXATE [Suspect]
     Active Substance: METHOTREXATE
     Dosage: UNK,UNK
     Route: 065
  55. METHOTREXATE [Suspect]
     Active Substance: METHOTREXATE
     Dosage: 18 MG, PER WEEK
     Route: 065
  56. CIPROFLOXACIN HYDROCHLORIDE [Suspect]
     Active Substance: CIPROFLOXACIN HYDROCHLORIDE
     Indication: Product used for unknown indication
     Dosage: 1000 MG, ONCE PER DAY
     Route: 065
     Dates: start: 20100917
  57. CIPROFLOXACIN HYDROCHLORIDE [Suspect]
     Active Substance: CIPROFLOXACIN HYDROCHLORIDE
     Indication: Depression
     Dosage: 1000 MG, ONCE PER DAY
     Route: 065
     Dates: start: 20200917
  58. CIPROFLOXACIN HYDROCHLORIDE [Suspect]
     Active Substance: CIPROFLOXACIN HYDROCHLORIDE
     Indication: Rheumatoid arthritis
     Dosage: 1000 MG, ONCE PER DAY
     Route: 065
     Dates: start: 20100917
  59. CIPROFLOXACIN HYDROCHLORIDE [Suspect]
     Active Substance: CIPROFLOXACIN HYDROCHLORIDE
     Indication: Abdominal discomfort
     Dosage: UNK,  UNK
     Route: 065
  60. CIPROFLOXACIN HYDROCHLORIDE [Suspect]
     Active Substance: CIPROFLOXACIN HYDROCHLORIDE
     Dosage: 1000 MG, ONCE PER DAY
     Route: 065
     Dates: start: 20100917
  61. CIPROFLOXACIN HYDROCHLORIDE [Suspect]
     Active Substance: CIPROFLOXACIN HYDROCHLORIDE
     Dosage: 1000 MG, ONCE PER DAY
     Route: 065
     Dates: start: 20100917
  62. CIPROFLOXACIN HYDROCHLORIDE [Suspect]
     Active Substance: CIPROFLOXACIN HYDROCHLORIDE
     Dosage: 1000 MG, ONCE PER DAY
     Route: 065
  63. VENLAFAXINE HYDROCHLORIDE [Suspect]
     Active Substance: VENLAFAXINE HYDROCHLORIDE
     Indication: Product used for unknown indication
     Dosage: 225 MG, ONCE PER DAY
     Route: 065
  64. VENLAFAXINE HYDROCHLORIDE [Suspect]
     Active Substance: VENLAFAXINE HYDROCHLORIDE
     Indication: Depression
     Dosage: UNK,  UNK (UNKNOWN; ;)
  65. VENLAFAXINE HYDROCHLORIDE [Suspect]
     Active Substance: VENLAFAXINE HYDROCHLORIDE
     Indication: Rheumatoid arthritis
     Dosage: 225 MG, ONCE PER DAY, PROLONGED RELEASE,225 MG, DAILY
     Route: 065
  66. VENLAFAXINE HYDROCHLORIDE [Suspect]
     Active Substance: VENLAFAXINE HYDROCHLORIDE
     Dosage: 225 MG, ONCE PER DAY
     Route: 065
  67. SULFAGUANIDINE [Suspect]
     Active Substance: SULFAGUANIDINE
     Indication: Abdominal discomfort
     Dosage: 750 MG,  ONCE PER DAY
     Route: 065
  68. SULFAGUANIDINE [Suspect]
     Active Substance: SULFAGUANIDINE
     Dosage: 750 MG, ONCE PER DAY
     Route: 065
  69. ZINC [Suspect]
     Active Substance: PYRITHIONE ZINC\ZINC\ZINC CHLORIDE
     Indication: Product used for unknown indication
     Dosage: 750 MG,  ONCE PER DAY, (DIETHYLDITHIOCARBAMATE)
     Route: 065
  70. ZINC [Suspect]
     Active Substance: PYRITHIONE ZINC\ZINC\ZINC CHLORIDE
     Indication: Abdominal discomfort
     Dosage: UNK,  UNK (DIETHYLDITHIOCARBAMATE)
     Route: 065
  71. ZINC [Suspect]
     Active Substance: PYRITHIONE ZINC\ZINC\ZINC CHLORIDE
     Indication: Depression
     Dosage: 750 MG,  UNK
     Route: 065
  72. ZINC [Suspect]
     Active Substance: PYRITHIONE ZINC\ZINC\ZINC CHLORIDE
     Dosage: UNK,  UNK
     Route: 065
  73. CARBAMAZEPINE [Suspect]
     Active Substance: CARBAMAZEPINE
     Indication: Product used for unknown indication
     Dosage: 750 MG, ONCE PER DAY (750 MG, QD)
     Route: 065
     Dates: start: 20200917
  74. CARBAMAZEPINE [Suspect]
     Active Substance: CARBAMAZEPINE
     Indication: Depression
     Dosage: 750 MG, ONCE PER DAY (750 MG, QD)
     Route: 065
  75. CARBAMAZEPINE [Suspect]
     Active Substance: CARBAMAZEPINE
     Dosage: 750 MG, ONCE PER DAY (750 MG, QD)
     Route: 065
     Dates: start: 20210917
  76. CARBAMAZEPINE [Suspect]
     Active Substance: CARBAMAZEPINE
     Dosage: 750 MG, ONCE PER DAY (750 MG, QD)
     Route: 065
     Dates: start: 20100917
  77. CARBAMAZEPINE [Suspect]
     Active Substance: CARBAMAZEPINE
     Dosage: 750 MG, ONCE PER DAY (QD), 2750250 MG
     Route: 065
     Dates: start: 20200917
  78. CARBAMAZEPINE [Suspect]
     Active Substance: CARBAMAZEPINE
     Dosage: UNK, UNK
     Route: 065
  79. CARBAMAZEPINE [Suspect]
     Active Substance: CARBAMAZEPINE
     Dosage: 750 MG, ONCE PER DAY (QD), 2750250 MG
     Route: 065
     Dates: start: 20210917
  80. GUANIDINE [Suspect]
     Active Substance: GUANIDINE
     Indication: Abdominal discomfort
     Dosage: 750 MG, ONCE PER DAY (750 MG, QD(1,3-DIPHENYLGUANIDINE))
     Route: 065
  81. GUANIDINE [Suspect]
     Active Substance: GUANIDINE
     Indication: Depression
     Dosage: UNK, ONCE PER DAY (UNK UNK, QD (1,3-DIPHENYLGUANIDINE)
     Route: 065
  82. GUANIDINE [Suspect]
     Active Substance: GUANIDINE
     Indication: Product used for unknown indication
     Dosage: UNK,  UNK
  83. GUANIDINE [Suspect]
     Active Substance: GUANIDINE
     Dosage: UNK,  UNK
  84. GUANIDINE [Suspect]
     Active Substance: GUANIDINE
     Dosage: UNK,  UNK (1,3-DIPHENYLGUANIDINE)
  85. GUANIDINE [Suspect]
     Active Substance: GUANIDINE
     Dosage: 750 MG, UNK (750 MG (1,3-DIPHENYLGUANIDINE))
     Route: 065
  86. ACTIVATED CHARCOAL [Suspect]
     Active Substance: ACTIVATED CHARCOAL
     Indication: Product used for unknown indication
     Dosage: 750 MG, ONCE PER DAY
     Route: 065
  87. ACTIVATED CHARCOAL [Suspect]
     Active Substance: ACTIVATED CHARCOAL
     Dosage: 750 MG, UNK
     Route: 065
  88. ACTIVATED CHARCOAL [Suspect]
     Active Substance: ACTIVATED CHARCOAL
     Dosage: 750 ,UNK
     Route: 065
  89. THEOPHYLLINE [Suspect]
     Active Substance: THEOPHYLLINE
     Indication: Depression
     Dosage: 750 MG, ONCE PER DAY
     Route: 065
  90. THEOPHYLLINE [Suspect]
     Active Substance: THEOPHYLLINE
     Dosage: 750 MG, ONCE PER DAY
     Route: 065
  91. PHYLLOCONTIN [Suspect]
     Active Substance: AMINOPHYLLINE
     Indication: Product used for unknown indication
     Dosage: 400 MG, ONCE PER DAY
     Route: 065
     Dates: start: 20100917
  92. PHYLLOCONTIN [Suspect]
     Active Substance: AMINOPHYLLINE
     Dosage: 400 MG, ONCE PER DAY
     Dates: start: 20200917
  93. PHYLLOCONTIN [Suspect]
     Active Substance: AMINOPHYLLINE
     Dosage: 400 MG, ONCE PER DAY
     Route: 065
  94. AMOXICILLIN [Suspect]
     Active Substance: AMOXICILLIN
     Indication: Abdominal discomfort
     Dosage: 125 MG/ 5 ML
     Route: 065
     Dates: start: 20210904
  95. AMOXICILLIN [Suspect]
     Active Substance: AMOXICILLIN
     Indication: Product used for unknown indication
     Dosage: 125 MG/ 5 ML
     Route: 065
  96. PROBIOTICS NOS [Suspect]
     Active Substance: PROBIOTICS NOS
     Indication: Abdominal discomfort
     Dosage: UNK,   UNK
     Route: 065
  97. PROBIOTICS NOS [Suspect]
     Active Substance: PROBIOTICS NOS
     Indication: Depression
     Dosage: 750 MG,   UNK
     Route: 065
  98. PROBIOTICS NOS [Suspect]
     Active Substance: PROBIOTICS NOS
     Dosage: UNK,  UNK
     Route: 065
  99. LACTOBACILLUS RHAMNOSUS [Suspect]
     Active Substance: LACTOBACILLUS RHAMNOSUS
     Indication: Depression
     Dosage: UNK,  UNK
     Route: 065
  100. LACTOBACILLUS RHAMNOSUS [Suspect]
     Active Substance: LACTOBACILLUS RHAMNOSUS
     Indication: Abdominal discomfort
     Dosage: 750 MG, UNKNOWN
     Route: 065
  101. VENLAFAXINE [Suspect]
     Active Substance: VENLAFAXINE HYDROCHLORIDE
     Indication: Rheumatoid arthritis
     Dosage: 225 MG, ONCE PER DAY
     Route: 065
  102. VENLAFAXINE [Suspect]
     Active Substance: VENLAFAXINE HYDROCHLORIDE
     Indication: Depression
     Dosage: 225 MG, ONCE PER DAY
  103. VENLAFAXINE HYDROCHLORIDE [Suspect]
     Active Substance: VENLAFAXINE HYDROCHLORIDE
     Indication: Depression
     Dosage: 225 MG, ONCE PER DAY (PROLONGED RELEASE)
     Route: 065
  104. VENLAFAXINE HYDROCHLORIDE [Suspect]
     Active Substance: VENLAFAXINE HYDROCHLORIDE
     Indication: Rheumatoid arthritis
     Dosage: UNK,  UNK
  105. VENLAFAXINE HYDROCHLORIDE [Suspect]
     Active Substance: VENLAFAXINE HYDROCHLORIDE
     Dosage: 225 MG, UNK
  106. BENDROFLUMETHIAZIDE [Concomitant]
     Active Substance: BENDROFLUMETHIAZIDE
     Indication: Product used for unknown indication
     Dosage: 750 MG, UNK
     Route: 065
  107. BENDROFLUMETHIAZIDE [Concomitant]
     Active Substance: BENDROFLUMETHIAZIDE
     Indication: Pituitary tumour
     Dosage: UNK,  UNK
     Route: 065
  108. BENDROFLUMETHIAZIDE [Concomitant]
     Active Substance: BENDROFLUMETHIAZIDE
     Indication: Depression
     Dosage: UNK,  UNK
     Route: 065
  109. BENDROFLUMETHIAZIDE [Concomitant]
     Active Substance: BENDROFLUMETHIAZIDE
     Dosage: UNK,  UNK
     Route: 065
  110. CABERGOLINE [Concomitant]
     Active Substance: CABERGOLINE
     Indication: Empty sella syndrome
     Dosage: UNK,  UNK
     Route: 065
  111. CABERGOLINE [Concomitant]
     Active Substance: CABERGOLINE
     Indication: Pituitary tumour
     Dosage: UNK,  UNK
     Route: 065
  112. CABERGOLINE [Concomitant]
     Active Substance: CABERGOLINE
     Indication: Product used for unknown indication
     Dosage: UNK,  UNK
     Route: 065
  113. CABERGOLINE [Concomitant]
     Active Substance: CABERGOLINE
     Indication: Pituitary tumour
  114. CETIRIZINE [Concomitant]
     Active Substance: CETIRIZINE HYDROCHLORIDE
     Indication: Product used for unknown indication
     Dosage: UNK,  UNK
     Route: 065
  115. CETIRIZINE [Concomitant]
     Active Substance: CETIRIZINE HYDROCHLORIDE
     Indication: Abdominal discomfort
     Dosage: UNK,  UNK
     Route: 065
  116. EZETIMIBE [Concomitant]
     Active Substance: EZETIMIBE
     Indication: Product used for unknown indication
     Dosage: UNK,  UNK
     Route: 065
  117. FOLIC ACID [Concomitant]
     Active Substance: FOLIC ACID
     Indication: Product used for unknown indication
     Dosage: UNK,  UNK
     Route: 065
  118. FOLIC ACID [Concomitant]
     Active Substance: FOLIC ACID
     Dosage: UNK,  UNK
     Route: 065
  119. LEVOTHYROXINE [Concomitant]
     Active Substance: LEVOTHYROXINE\LEVOTHYROXINE SODIUM
     Indication: Product used for unknown indication
     Dosage: UNK,  UNK
     Route: 016
  120. LEVOTHYROXINE [Concomitant]
     Active Substance: LEVOTHYROXINE\LEVOTHYROXINE SODIUM
     Indication: Abdominal discomfort
     Dosage: UNK,  UNK
     Route: 016
  121. ORUVAIL [Concomitant]
     Active Substance: KETOPROFEN
     Indication: Empty sella syndrome
     Dosage: UNK,  UNK
     Route: 065
  122. ORUVAIL [Concomitant]
     Active Substance: KETOPROFEN
     Indication: Product used for unknown indication
     Dosage: UNK,  UNK
     Route: 065
  123. ACTIVATED CHARCOAL [Concomitant]
     Active Substance: ACTIVATED CHARCOAL
     Indication: Product used for unknown indication
     Dosage: 750 MG,  UNK
     Route: 065
  124. ACTIVATED CHARCOAL [Concomitant]
     Active Substance: ACTIVATED CHARCOAL
     Dosage: 750 MG,  UNK
  125. ACTIVATED CHARCOAL [Concomitant]
     Active Substance: ACTIVATED CHARCOAL
     Indication: Product used for unknown indication
     Dosage: 750 MG, UNK
  126. DOXYCYCLINE [Concomitant]
     Active Substance: DOXYCYCLINE
     Indication: Pulmonary pain
     Dosage: UNK,  UNK
  127. THEOPHYLLINE [Concomitant]
     Active Substance: THEOPHYLLINE
     Indication: Abdominal discomfort
     Dosage: 750 MG, ONCE PER DAY, (750 MG, QD)
  128. THEOPHYLLINE [Concomitant]
     Active Substance: THEOPHYLLINE
     Indication: Depression
  129. AMINOPHYLLINE [Suspect]
     Active Substance: AMINOPHYLLINE
     Indication: Product used for unknown indication
     Dosage: 400 MG, ONCE PER DAY
     Dates: start: 20100917
  130. AMINOPHYLLINE [Suspect]
     Active Substance: AMINOPHYLLINE
     Dosage: 400 MG, ONCE PER DAY
     Dates: start: 20200917

REACTIONS (13)
  - Lower respiratory tract infection [Not Recovered/Not Resolved]
  - Pulmonary pain [Unknown]
  - Product dose omission issue [Unknown]
  - Arthropathy [Unknown]
  - Knee arthroplasty [Unknown]
  - Overdose [Unknown]
  - Drug abuse [Unknown]
  - Rash [Not Recovered/Not Resolved]
  - Abdominal discomfort [Unknown]
  - Off label use [Unknown]
  - Intentional product misuse [Unknown]
  - Obesity [Unknown]
  - Amyloid arthropathy [Unknown]

NARRATIVE: CASE EVENT DATE: 20201001
